FAERS Safety Report 4582406-3 (Version None)
Quarter: 2005Q1

REPORT INFORMATION
  Report Type: 
  Country: None (occurrence: None)
  Receive Date: 20050119
  Receipt Date: 20040628
  Transmission Date: 20050727
  Serious: Yes (Death, Hospitalization)
  Sender: FDA-Public Use
  Company Number: US-JNJFOC-20040402792

PATIENT
  Age: 75 Year
  Sex: Female
  Weight: 62.5964 kg

DRUGS (3)
  1. DOXIL [Suspect]
     Indication: OVARIAN CANCER
     Dosage: 40 MG/M2, 1 IN 28 DAY, INTRAVENOUS
     Route: 042
     Dates: start: 20040303, end: 20040331
  2. GLUTAMINE ( ) PROTEIN SUPPLEMENTS [Concomitant]
  3. NEURONTIN [Concomitant]

REACTIONS (6)
  - DRY SKIN [None]
  - ERYTHEMA [None]
  - INFLAMMATION [None]
  - OEDEMA PERIPHERAL [None]
  - OVARIAN CANCER [None]
  - PAIN IN EXTREMITY [None]
